FAERS Safety Report 21107854 (Version 1)
Quarter: 2022Q3

REPORT INFORMATION
  Report Type: Report from Study
  Country: CO (occurrence: CO)
  Receive Date: 20220720
  Receipt Date: 20220720
  Transmission Date: 20221026
  Serious: Yes (Other)
  Sender: FDA-Public Use
  Company Number: CO-JNJFOC-20190117033

PATIENT
  Age: 67 Year
  Sex: Female
  Weight: 56 kg

DRUGS (7)
  1. SIMPONI [Suspect]
     Active Substance: GOLIMUMAB
     Indication: Rheumatoid arthritis
     Route: 058
     Dates: start: 20140413
  2. SIMPONI [Suspect]
     Active Substance: GOLIMUMAB
     Route: 058
     Dates: start: 20140616, end: 20180406
  3. SIMPONI [Suspect]
     Active Substance: GOLIMUMAB
     Route: 058
     Dates: start: 20180916
  4. PREGABALIN [Concomitant]
     Active Substance: PREGABALIN
  5. ACETAMINOPHEN\CAFFEINE [Concomitant]
     Active Substance: ACETAMINOPHEN\CAFFEINE
  6. METHOCARBAMOL [Concomitant]
     Active Substance: METHOCARBAMOL
  7. CALCITRIOL [Concomitant]
     Active Substance: CALCITRIOL

REACTIONS (6)
  - Pneumonia [Recovering/Resolving]
  - COVID-19 [Recovering/Resolving]
  - Bronchitis [Recovering/Resolving]
  - Pyrexia [Recovering/Resolving]
  - Headache [Recovering/Resolving]
  - Nasal congestion [Recovering/Resolving]

NARRATIVE: CASE EVENT DATE: 20190101
